FAERS Safety Report 8523268 (Version 4)
Quarter: 2013Q1

REPORT INFORMATION
  Report Type: Spontaneous
  Country: DE (occurrence: DE)
  Receive Date: 20120420
  Receipt Date: 20130326
  Transmission Date: 20140127
  Serious: Yes (Hospitalization, Other)
  Sender: FDA-Public Use
  Company Number: PHHY2012DE032800

PATIENT
  Age: 46 Year
  Sex: Male

DRUGS (4)
  1. GILENYA [Suspect]
     Indication: MULTIPLE SCLEROSIS
     Dosage: 0.5 MG, QD
     Route: 048
     Dates: end: 20120503
  2. MAGNESIUM [Concomitant]
     Dosage: 300 MG, DAILY
     Route: 048
  3. MAGNESIUM PHOSPHATE [Concomitant]
     Dosage: 300 MG, UNK
     Route: 048
  4. NUTRITION SUPPLEMENTS [Concomitant]

REACTIONS (8)
  - Intestinal perforation [Recovered/Resolved]
  - Appendicitis [Recovered/Resolved]
  - Gamma-glutamyltransferase increased [Recovering/Resolving]
  - Lymphocyte count decreased [Not Recovered/Not Resolved]
  - Cholelithiasis [Not Recovered/Not Resolved]
  - Transaminases increased [Recovered/Resolved]
  - Alanine aminotransferase increased [Recovered/Resolved]
  - Aspartate aminotransferase increased [Recovered/Resolved]
